FAERS Safety Report 7411564-8 (Version None)
Quarter: 2011Q2

REPORT INFORMATION
  Report Type: 
  Country: None (occurrence: None)
  Receive Date: 20110413
  Receipt Date: 20100907
  Transmission Date: 20111010
  Serious: Yes (Other)
  Sender: FDA-Public Use
  Company Number: US-BRISTOL-MYERS SQUIBB COMPANY-15262421

PATIENT
  Age: 63 Year
  Sex: Female

DRUGS (12)
  1. LASIX [Concomitant]
  2. ASPIRIN [Concomitant]
  3. CALCIUM [Concomitant]
  4. TEMAZEPAM [Concomitant]
  5. POTASSIUM [Concomitant]
  6. HYDROCODONE [Concomitant]
     Indication: PAIN
  7. COUMADIN [Concomitant]
  8. ERBITUX [Suspect]
     Indication: COLON CANCER
     Dosage: LOADING DOSE ON 26AUG10 INTERRUPTED  AND RESTARTED
  9. COREG [Concomitant]
  10. ZOCOR [Concomitant]
  11. FISH OIL [Concomitant]
  12. VITAMIN TAB [Concomitant]

REACTIONS (1)
  - INFUSION RELATED REACTION [None]
